FAERS Safety Report 16055821 (Version 1)
Quarter: 2019Q2

REPORT INFORMATION
  Report Type: Spontaneous
  Country: US (occurrence: US)
  Receive Date: 20190308
  Receipt Date: 20190308
  Transmission Date: 20190711
  Serious: Yes (Disabling, Other)
  Sender: FDA-Public Use
  Company Number: None

PATIENT
  Age: 65 Year
  Sex: Female
  Weight: 83.25 kg

DRUGS (1)
  1. MONTELEUKAST [Suspect]
     Active Substance: MONTELUKAST SODIUM
     Indication: NASAL CONGESTION
     Route: 048

REACTIONS (5)
  - Tremor [None]
  - Insomnia [None]
  - Depression [None]
  - Anxiety [None]
  - Rapid eye movement sleep behaviour disorder [None]

NARRATIVE: CASE EVENT DATE: 20181127
